FAERS Safety Report 13120743 (Version 2)
Quarter: 2017Q1

REPORT INFORMATION
  Report Type: Report from Study
  Country: US (occurrence: US)
  Receive Date: 20170117
  Receipt Date: 20170217
  Transmission Date: 20170428
  Serious: Yes (Other)
  Sender: FDA-Public Use
  Company Number: PHEH2017US001163

PATIENT
  Sex: Female

DRUGS (1)
  1. COSENTYX [Suspect]
     Active Substance: SECUKINUMAB
     Indication: PRODUCT USED FOR UNKNOWN INDICATION
     Dosage: 300 MG, QMO (TWO 150 MG INJECTIONS)
     Route: 065
     Dates: start: 201609, end: 20161101

REACTIONS (4)
  - Tooth abscess [Unknown]
  - Infection [Unknown]
  - Influenza [Unknown]
  - Malaise [Unknown]
